FAERS Safety Report 5660336-3 (Version None)
Quarter: 2008Q1

REPORT INFORMATION
  Report Type: 
  Country: None (occurrence: None)
  Receive Date: 20080311
  Receipt Date: 20070926
  Transmission Date: 20080703
  Serious: No
  Sender: FDA-Public Use
  Company Number: US-BAYER-200713123BCC

PATIENT
  Age: 35 Year
  Sex: Female
  Weight: 100 kg

DRUGS (9)
  1. ALEVE [Suspect]
     Indication: DYSMENORRHOEA
     Dosage: TOTAL DAILY DOSE: 440 MG  UNIT DOSE: 220 MG
     Route: 048
  2. ALEVE [Suspect]
     Dosage: TOTAL DAILY DOSE: 880 MG  UNIT DOSE: 220 MG
     Route: 048
     Dates: start: 20070925
  3. VITAMIN B-12 [Concomitant]
  4. FUROSEMIDE [Concomitant]
  5. POTASSIUM CHLORIDE [Concomitant]
  6. TOPAMAX [Concomitant]
  7. FOLIC ACID [Concomitant]
  8. FIORINAL [Concomitant]
  9. DILANTIN [Concomitant]

REACTIONS (4)
  - FEELING HOT [None]
  - HYPERHIDROSIS [None]
  - HYPERSENSITIVITY [None]
  - RASH GENERALISED [None]
